FAERS Safety Report 22598891 (Version 1)
Quarter: 2023Q2

REPORT INFORMATION
  Report Type: Spontaneous
  Country: KR (occurrence: KR)
  Receive Date: 20230614
  Receipt Date: 20230614
  Transmission Date: 20230721
  Serious: Yes (Hospitalization)
  Sender: FDA-Public Use
  Company Number: KR-STRIDES ARCOLAB LIMITED-2023SP009385

PATIENT
  Age: 70 Year
  Sex: Male

DRUGS (6)
  1. GABAPENTIN [Suspect]
     Active Substance: GABAPENTIN
     Indication: Facial pain
     Dosage: 300 MILLIGRAM, TID
     Route: 065
  2. PROPRANOLOL [Suspect]
     Active Substance: PROPRANOLOL HYDROCHLORIDE
     Indication: Essential tremor
     Dosage: 60 MILLIGRAM, BID
     Route: 065
  3. TOPIRAMATE [Suspect]
     Active Substance: TOPIRAMATE
     Indication: Essential tremor
     Dosage: 50 MILLIGRAM PER DAY
     Route: 065
  4. ASPIRIN [Suspect]
     Active Substance: ASPIRIN
     Indication: Anticoagulant therapy
     Dosage: UNK
     Route: 065
  5. CLONAZEPAM [Suspect]
     Active Substance: CLONAZEPAM
     Indication: Essential tremor
     Dosage: 0.25 MILLIGRAM PER DAY
     Route: 065
  6. CARBAMAZEPINE [Concomitant]
     Active Substance: CARBAMAZEPINE
     Indication: Facial pain
     Dosage: 300 MILLIGRAM, TID
     Route: 065

REACTIONS (5)
  - Subdural haematoma [Recovered/Resolved]
  - Therapy partial responder [Unknown]
  - Drug ineffective [Unknown]
  - Tremor [Unknown]
  - Off label use [Unknown]
